FAERS Safety Report 13236321 (Version 2)
Quarter: 2017Q3

REPORT INFORMATION
  Report Type: Other
  Country: JP (occurrence: JP)
  Receive Date: 20170215
  Receipt Date: 20170708
  Transmission Date: 20171127
  Serious: Yes (Other)
  Sender: FDA-Public Use
  Company Number: JP-ACTELION-A-CH2017-149556

PATIENT
  Age: 3 Month
  Sex: Male

DRUGS (2)
  1. OXYGEN. [Concomitant]
     Active Substance: OXYGEN
  2. TRACLEER [Suspect]
     Active Substance: BOSENTAN
     Indication: PULMONARY ARTERIAL HYPERTENSION
     Dosage: 1.3 MG/KG, QD
     Route: 048

REACTIONS (3)
  - Left ventricular failure [Recovered/Resolved]
  - Patent ductus arteriosus repair [Unknown]
  - Patent ductus arteriosus [Recovered/Resolved]

NARRATIVE: CASE EVENT DATE: 20160107
